FAERS Safety Report 16128720 (Version 1)
Quarter: 2019Q1

REPORT INFORMATION
  Report Type: Spontaneous
  Country: US (occurrence: US)
  Receive Date: 20190328
  Receipt Date: 20190328
  Transmission Date: 20190418
  Serious: No
  Sender: FDA-Public Use
  Company Number: US-PFIZER INC-2019131019

PATIENT
  Sex: Male

DRUGS (4)
  1. LYRICA [Suspect]
     Active Substance: PREGABALIN
     Indication: DYSARTHRIA
  2. LYRICA [Suspect]
     Active Substance: PREGABALIN
     Indication: NYSTAGMUS
  3. LYRICA [Suspect]
     Active Substance: PREGABALIN
     Indication: DYSMETRIA
  4. LYRICA [Suspect]
     Active Substance: PREGABALIN
     Indication: ATAXIA
     Dosage: 50 MG, 3X/DAY

REACTIONS (1)
  - Drug intolerance [Unknown]
